FAERS Safety Report 11709027 (Version 1)
Quarter: 2015Q4

REPORT INFORMATION
  Report Type: Spontaneous
  Country: US (occurrence: US)
  Receive Date: 20151104
  Receipt Date: 20151104
  Transmission Date: 20160304
  Serious: No
  Sender: FDA-Public Use
  Company Number: US-ELI_LILLY_AND_COMPANY-US201108009488

PATIENT
  Age: 76 Year
  Sex: Male

DRUGS (1)
  1. FORTEO [Suspect]
     Active Substance: TERIPARATIDE
     Indication: OSTEOPOROSIS

REACTIONS (6)
  - Heart rate increased [Unknown]
  - Pyrexia [Unknown]
  - Musculoskeletal disorder [Unknown]
  - Dizziness [Unknown]
  - Blood pressure increased [Unknown]
  - Heat exhaustion [Unknown]

NARRATIVE: CASE EVENT DATE: 201108
